FAERS Safety Report 10145840 (Version 1)
Quarter: 2014Q2

REPORT INFORMATION
  Report Type: Report from Study
  Country: US (occurrence: US)
  Receive Date: 20140501
  Receipt Date: 20140501
  Transmission Date: 20141212
  Serious: No
  Sender: FDA-Public Use
  Company Number: US-ABBVIE-13P-163-1099934-00

PATIENT
  Age: 59 Year
  Sex: Female

DRUGS (1)
  1. CREON [Suspect]
     Indication: PANCREATIC INSUFFICIENCY

REACTIONS (5)
  - Bowel movement irregularity [Unknown]
  - Abdominal pain [Unknown]
  - Flatulence [Unknown]
  - Hyperphagia [Unknown]
  - Abdominal discomfort [Unknown]
